FAERS Safety Report 8131116-4 (Version None)
Quarter: 2012Q1

REPORT INFORMATION
  Report Type: 
  Country: None (occurrence: None)
  Receive Date: 20120207
  Receipt Date: 20120127
  Transmission Date: 20120608
  Serious: Yes (Death, Hospitalization, Disabling)
  Sender: FDA-Public Use
  Company Number: WAES 1201USA03256

PATIENT
  Age: 13 Year
  Sex: Male
  Weight: 51.7101 kg

DRUGS (19)
  1. CAP VORINOSTAT UNK [Suspect]
     Indication: NEUROBLASTOMA
     Dosage: 350 MG/DAILY/PO
     Route: 048
     Dates: start: 20111206, end: 20111219
  2. ZOFRAN [Concomitant]
  3. MORPHINE [Concomitant]
  4. FLAGYL [Concomitant]
  5. LASIX [Concomitant]
  6. MIRALAX [Concomitant]
  7. ACETAMINOPHEN [Concomitant]
  8. OXYCODONE HCL [Concomitant]
  9. DILAUDID [Concomitant]
  10. SEPTRA [Concomitant]
  11. BENADRYL [Concomitant]
  12. PANTOPRAZOLE [Concomitant]
  13. ACYCLOVIR [Concomitant]
  14. CALCIUM CARBONATE [Concomitant]
  15. MAGNESIUM OXIDE [Concomitant]
  16. IOBENGUANE SULFATE I 131 [Suspect]
     Indication: NEUROBLASTOMA
     Dosage: /1S/IV
     Route: 042
     Dates: start: 20111208, end: 20111208
  17. CEFEPIME [Concomitant]
  18. GRANULOCYTE COLONY STIMULATING [Concomitant]
  19. VITAMIN D (UNSPECIFIED) [Concomitant]

REACTIONS (24)
  - OCCULT BLOOD POSITIVE [None]
  - SUBDURAL HAEMATOMA [None]
  - CEREBRAL HAEMORRHAGE [None]
  - HEPATIC FUNCTION ABNORMAL [None]
  - ACTIVATED PARTIAL THROMBOPLASTIN TIME PROLONGED [None]
  - POST PROCEDURAL HAEMORRHAGE [None]
  - ELECTROLYTE IMBALANCE [None]
  - THROMBOCYTOPENIA [None]
  - BRADYCARDIA [None]
  - HYPERTENSION [None]
  - BACK PAIN [None]
  - CONDITION AGGRAVATED [None]
  - BRAIN MIDLINE SHIFT [None]
  - BLOOD BILIRUBIN INCREASED [None]
  - NAUSEA [None]
  - VOMITING [None]
  - METASTASES TO PLEURA [None]
  - HEPATIC MASS [None]
  - PAIN [None]
  - ABDOMINAL DISTENSION [None]
  - INTERNATIONAL NORMALISED RATIO INCREASED [None]
  - BILIRUBIN CONJUGATED INCREASED [None]
  - METASTASES TO BONE [None]
  - BRAIN HERNIATION [None]
